FAERS Safety Report 10273861 (Version 1)
Quarter: 2014Q3

REPORT INFORMATION
  Report Type: Spontaneous
  Country: JP (occurrence: JP)
  Receive Date: 20140702
  Receipt Date: 20140702
  Transmission Date: 20150326
  Serious: Yes (Hospitalization)
  Sender: FDA-Public Use
  Company Number: JP-VIIV HEALTHCARE LIMITED-B1008619A

PATIENT
  Sex: Male

DRUGS (9)
  1. RETROVIR [Suspect]
     Active Substance: ZIDOVUDINE
     Indication: HIV INFECTION
     Route: 064
  2. RETROVIR [Suspect]
     Active Substance: ZIDOVUDINE
     Indication: HIV INFECTION
     Route: 064
  3. RETROVIR [Suspect]
     Active Substance: ZIDOVUDINE
     Route: 048
  4. RETROVIR [Suspect]
     Active Substance: ZIDOVUDINE
     Indication: HIV INFECTION
     Route: 064
  5. KALETRA [Concomitant]
     Active Substance: LOPINAVIR\RITONAVIR
     Indication: PRODUCT USED FOR UNKNOWN INDICATION
     Route: 064
  6. BETAMETHASONE SODIUM PHOSPHATE [Concomitant]
     Active Substance: BETAMETHASONE SODIUM PHOSPHATE
     Indication: PRODUCT USED FOR UNKNOWN INDICATION
     Route: 064
  7. RITODRINE HYDROCHLORIDE [Concomitant]
     Active Substance: RITODRINE HYDROCHLORIDE
     Indication: PRODUCT USED FOR UNKNOWN INDICATION
     Route: 064
  8. EPIVIR [Suspect]
     Active Substance: LAMIVUDINE
     Indication: HIV INFECTION
     Route: 064
  9. RETROVIR [Suspect]
     Active Substance: ZIDOVUDINE
     Indication: PRODUCT USED FOR UNKNOWN INDICATION
     Route: 048

REACTIONS (5)
  - Anaemia [Unknown]
  - Low birth weight baby [Recovered/Resolved]
  - Foetal exposure during pregnancy [Unknown]
  - Premature baby [Unknown]
  - Transient tachypnoea of the newborn [Unknown]
